FAERS Safety Report 8487264-2 (Version None)
Quarter: 2012Q3

REPORT INFORMATION
  Report Type: 
  Country: None (occurrence: None)
  Receive Date: 20120705
  Receipt Date: 20120625
  Transmission Date: 20120928
  Serious: No
  Sender: FDA-Public Use
  Company Number: US-BIOGENIDEC-2012BI022591

PATIENT
  Sex: Male

DRUGS (1)
  1. TYSABRI [Suspect]
     Indication: MULTIPLE SCLEROSIS
     Route: 042
     Dates: start: 20090616

REACTIONS (6)
  - SENSATION OF HEAVINESS [None]
  - HEAD INJURY [None]
  - ARTHRITIS [None]
  - FATIGUE [None]
  - FALL [None]
  - BACK INJURY [None]
